FAERS Safety Report 9581859 (Version 2)
Quarter: 2013Q4

REPORT INFORMATION
  Report Type: Spontaneous
  Country: CA (occurrence: CA)
  Receive Date: 20131002
  Receipt Date: 20131122
  Transmission Date: 20140711
  Serious: Yes (Death)
  Sender: FDA-Public Use
  Company Number: CHPA2013CA015084

PATIENT
  Age: 86 Year
  Sex: Male

DRUGS (1)
  1. BUCKLEY^S UNKNOWN [Suspect]
     Dosage: UNK, UNK

REACTIONS (1)
  - Death [Fatal]
